FAERS Safety Report 17676140 (Version 1)
Quarter: 2020Q2

REPORT INFORMATION
  Report Type: Spontaneous
  Country: CA (occurrence: CA)
  Receive Date: 20200416
  Receipt Date: 20200416
  Transmission Date: 20200714
  Serious: Yes (Other)
  Sender: FDA-Public Use
  Company Number: CA-ROCHE-2581111

PATIENT
  Sex: Female

DRUGS (6)
  1. FULVESTRANT. [Concomitant]
     Active Substance: FULVESTRANT
     Dosage: ON DAY 1, 15 AND 28
     Route: 030
     Dates: start: 20180320, end: 20180321
  2. TAXOL [Suspect]
     Active Substance: PACLITAXEL
     Indication: PRODUCT USED FOR UNKNOWN INDICATION
     Route: 065
  3. ZOLADEX [Suspect]
     Active Substance: GOSERELIN ACETATE
     Indication: PRODUCT USED FOR UNKNOWN INDICATION
     Route: 065
  4. CAPECITABINE. [Suspect]
     Active Substance: CAPECITABINE
     Indication: PRODUCT USED FOR UNKNOWN INDICATION
     Route: 065
     Dates: start: 201810, end: 202002
  5. PALBOCICLIB [Concomitant]
     Active Substance: PALBOCICLIB
     Route: 065
     Dates: start: 20200318, end: 20200318
  6. LETROZOLE. [Suspect]
     Active Substance: LETROZOLE
     Indication: PRODUCT USED FOR UNKNOWN INDICATION
     Route: 065

REACTIONS (2)
  - Ascites [Unknown]
  - Metastatic neoplasm [Unknown]
